FAERS Safety Report 4560396-7 (Version None)
Quarter: 2005Q1

REPORT INFORMATION
  Report Type: 
  Country: None (occurrence: None)
  Receive Date: 20050125
  Receipt Date: 20050118
  Transmission Date: 20050727
  Serious: Yes (Hospitalization)
  Sender: FDA-Public Use
  Company Number: US-ROCHE-392690

PATIENT
  Age: 7 Year
  Sex: Female
  Weight: 26.8 kg

DRUGS (9)
  1. DACLIZUMAB [Suspect]
     Route: 065
  2. MYCOPHENOLATE MOFETIL [Suspect]
     Route: 048
  3. PROGRAF [Suspect]
     Route: 065
  4. PREDNISONE [Suspect]
     Route: 048
  5. VALGANCICLOVIR [Concomitant]
  6. SEPTRA [Concomitant]
     Route: 048
  7. ASPIRIN [Concomitant]
  8. PRILOSEC [Concomitant]
     Route: 048
  9. MAGNESIUM PLUS PROTEIN [Concomitant]
     Route: 048

REACTIONS (8)
  - ABDOMINAL PAIN [None]
  - BRAIN OEDEMA [None]
  - DIARRHOEA [None]
  - ENCEPHALITIS [None]
  - ENCEPHALITIS VIRAL [None]
  - HYDROCEPHALUS [None]
  - ORAL INTAKE REDUCED [None]
  - VOMITING [None]
